FAERS Safety Report 5537824-3 (Version None)
Quarter: 2007Q4

REPORT INFORMATION
  Report Type: 
  Country: None (occurrence: None)
  Receive Date: 20071207
  Receipt Date: 20071126
  Transmission Date: 20080405
  Serious: Yes (Other)
  Sender: FDA-Public Use
  Company Number: US-PFIZER INC-2007058404

PATIENT
  Sex: Female
  Weight: 94.545 kg

DRUGS (12)
  1. LYRICA [Suspect]
     Indication: FIBROMYALGIA
     Dates: start: 20070704, end: 20070724
  2. NEURONTIN [Suspect]
     Indication: PAIN
     Dates: start: 20070724, end: 20070827
  3. AMITRIPTLINE HCL [Concomitant]
  4. DARVOCET [Concomitant]
  5. LIQUORICE [Concomitant]
  6. CALCIUM [Concomitant]
  7. ALL OTHER THERAPEUTIC PRODUCTS [Concomitant]
  8. AMBIEN [Concomitant]
  9. AVIL [Concomitant]
  10. LISINOPRIL [Concomitant]
  11. HYDROCODONE BITARTRATE [Concomitant]
  12. RANITIDINE HCL [Concomitant]

REACTIONS (12)
  - ARTHRALGIA [None]
  - ASTHENIA [None]
  - BURNING SENSATION [None]
  - CHOKING [None]
  - EPISTAXIS [None]
  - FACIAL PALSY [None]
  - MEMORY IMPAIRMENT [None]
  - MUSCULOSKELETAL PAIN [None]
  - OEDEMA PERIPHERAL [None]
  - RASH PAPULAR [None]
  - SOMNOLENCE [None]
  - TREMOR [None]
